FAERS Safety Report 8799083 (Version 1)
Quarter: 2012Q4

REPORT INFORMATION
  Report Type: 
  Country: US (occurrence: US)
  Receive Date: 20120920
  Receipt Date: 20120920
  Transmission Date: 20130627
  Serious: No
  Sender: FDA-Public Use
  Company Number: US-ASTRAZENECA-2011SE62190

PATIENT
  Sex: Female

DRUGS (15)
  1. LISINOPRIL [Suspect]
     Route: 048
  2. TOPROL XL [Suspect]
     Route: 048
  3. PROVENTIL HFA [Suspect]
     Dosage: 1-2 PUFFS EVERY HOUR AS NEEDED
     Route: 065
  4. POTASSIUM CHLORIDE [Suspect]
     Dosage: THREE TIMES A DAY
     Route: 048
  5. COZAAR [Suspect]
     Route: 048
  6. DYAZIDE [Suspect]
     Dosage: 37.5-25 MG DAILY
     Route: 048
  7. PROZAC [Suspect]
     Route: 048
  8. LOVASTATIN [Suspect]
     Route: 048
  9. SYNTHROID [Suspect]
     Dosage: 150 UG DAILY DURING THE WEEKANDS
     Route: 048
  10. SYNTHROID [Suspect]
     Dosage: 200 UG DAILY FROM MONDAY TO FRIDAY
     Route: 048
  11. TRAZODONE HCL [Suspect]
     Dosage: 1-2 DF AT NIGHT
     Route: 048
  12. CHILDRENS CHEWABLE ASPIRIN [Suspect]
     Dosage: 81 MG DAILY
     Route: 048
  13. FLOVENT HFA [Suspect]
     Dosage: 110 UG ONE PUFF TWICE A DAY
     Route: 065
  14. MOBIC [Suspect]
     Indication: PAIN
     Dosage: 1-2 DF DAILY AS NEEDED
     Route: 048
  15. NORVASC [Suspect]
     Route: 048

REACTIONS (5)
  - Drug hypersensitivity [Unknown]
  - Cough [Unknown]
  - Asthma [Unknown]
  - Depression [Unknown]
  - Arthritis [Unknown]
